FAERS Safety Report 7372661-9 (Version None)
Quarter: 2011Q1

REPORT INFORMATION
  Report Type: 
  Country: None (occurrence: None)
  Receive Date: 20110315
  Receipt Date: 20110228
  Transmission Date: 20110831
  Serious: Yes (Hospitalization, Other)
  Sender: FDA-Public Use
  Company Number: HALL-036-AE

PATIENT
  Sex: Female

DRUGS (1)
  1. IBUPROFEN TABLETS, USP 800 MG (AMNEAL) [Suspect]
     Dosage: ORAL
     Route: 048

REACTIONS (2)
  - HEADACHE [None]
  - MULTIPLE SCLEROSIS RELAPSE [None]
